FAERS Safety Report 7358646-7 (Version None)
Quarter: 2011Q1

REPORT INFORMATION
  Report Type: 
  Country: None (occurrence: None)
  Receive Date: 20110317
  Receipt Date: 20110304
  Transmission Date: 20110831
  Serious: Yes (Other)
  Sender: FDA-Public Use
  Company Number: PHHY2011GB18235

PATIENT
  Age: 42 Year
  Sex: Female

DRUGS (13)
  1. ACETAMINOPHEN AND CODEINE PHOSPHATE [Concomitant]
     Dosage: UNK
  2. PROMETHAZINE HYDROCHLORIDE [Concomitant]
     Dosage: UNK
  3. SPIRONOLACTONE [Concomitant]
     Dosage: UNK
  4. FLUOXETINE [Concomitant]
     Dosage: UNK
  5. GABAPENTIN [Concomitant]
     Dosage: UNK
  6. METHOCARBAMOL [Suspect]
     Indication: MUSCLE SPASMS
     Dosage: UNK
     Route: 048
     Dates: start: 20110110, end: 20110128
  7. WARFARIN SODIUM [Interacting]
     Indication: DEEP VEIN THROMBOSIS
     Dosage: UNK
  8. CETIRIZINE [Concomitant]
     Dosage: UNK
  9. SALMETEROL [Concomitant]
     Dosage: UNK
  10. LANSOPRAZOLE [Concomitant]
     Dosage: UNK
  11. QVAR 40 [Concomitant]
     Dosage: UNK
  12. SALBUTAMOL [Concomitant]
     Dosage: UNK
  13. ZINC SULFATE [Concomitant]
     Dosage: UNK

REACTIONS (2)
  - DRUG INTERACTION [None]
  - INTERNATIONAL NORMALISED RATIO INCREASED [None]
